FAERS Safety Report 24988165 (Version 1)
Quarter: 2025Q1

REPORT INFORMATION
  Report Type: Spontaneous
  Country: US (occurrence: US)
  Receive Date: 20250220
  Receipt Date: 20250220
  Transmission Date: 20250409
  Serious: Yes (Hospitalization, Other)
  Sender: NOVO NORDISK
  Company Number: US-NOVOPROD-1268440

PATIENT
  Age: 63 Year
  Sex: Female

DRUGS (10)
  1. OZEMPIC [Suspect]
     Active Substance: SEMAGLUTIDE
     Indication: Type 2 diabetes mellitus
     Dosage: 0.25 MG/0.5 MG QW
     Route: 058
     Dates: start: 20200605, end: 20211213
  2. OZEMPIC [Suspect]
     Active Substance: SEMAGLUTIDE
     Indication: Type 2 diabetes mellitus
     Dosage: 1 MG, QW
     Route: 058
     Dates: start: 20220425, end: 20230221
  3. OZEMPIC [Suspect]
     Active Substance: SEMAGLUTIDE
     Indication: Type 2 diabetes mellitus
     Dosage: 2 MG, QW
     Route: 058
     Dates: start: 20230614, end: 20230614
  4. LANTUS SOLOSTAR [Concomitant]
     Active Substance: INSULIN GLARGINE
     Indication: Type 2 diabetes mellitus
     Dates: start: 20200101
  5. JARDIANCE [Concomitant]
     Active Substance: EMPAGLIFLOZIN
     Indication: Type 2 diabetes mellitus
     Dates: start: 20200101
  6. CLOPIDOGREL [Concomitant]
     Active Substance: CLOPIDOGREL BISULFATE
     Indication: Anticoagulant therapy
     Dates: start: 20200101
  7. RAMIPRIL [Concomitant]
     Active Substance: RAMIPRIL
     Indication: Hypertension
     Dates: start: 20200101
  8. PANTOPRAZOLE [Concomitant]
     Active Substance: PANTOPRAZOLE
     Indication: Gastrooesophageal reflux disease
     Dates: start: 20210101
  9. ATORVASTATIN [Concomitant]
     Active Substance: ATORVASTATIN
     Indication: Blood cholesterol increased
     Dates: start: 20210101
  10. METFORMIN [Concomitant]
     Active Substance: METFORMIN HYDROCHLORIDE
     Indication: Type 2 diabetes mellitus
     Dates: start: 20210101

REACTIONS (5)
  - Malnutrition [Not Recovered/Not Resolved]
  - Dehydration [Not Recovered/Not Resolved]
  - Decreased appetite [Not Recovered/Not Resolved]
  - Impaired gastric emptying [Not Recovered/Not Resolved]
  - Vomiting [Not Recovered/Not Resolved]

NARRATIVE: CASE EVENT DATE: 20210101
